FAERS Safety Report 15132759 (Version 1)
Quarter: 2018Q3

REPORT INFORMATION
  Report Type: Spontaneous
  Country: JP (occurrence: JP)
  Receive Date: 20180712
  Receipt Date: 20180712
  Transmission Date: 20181010
  Serious: Yes (Life-Threatening)
  Sender: FDA-Public Use
  Company Number: JP-009507513-1712JPN010273

PATIENT
  Age: 48 Year
  Sex: Male

DRUGS (10)
  1. BIPERIDEN HYDROCHLORIDE [Concomitant]
     Active Substance: BIPERIDEN HYDROCHLORIDE
     Indication: RESTLESSNESS
     Dosage: 1 MG
     Route: 048
     Dates: start: 20160607
  2. FLUNITRAZEPAM [Concomitant]
     Active Substance: FLUNITRAZEPAM
     Indication: INSOMNIA
     Dosage: 4 MG
     Route: 048
     Dates: start: 20150525
  3. DULOXETINE HYDROCHLORIDE. [Concomitant]
     Active Substance: DULOXETINE HYDROCHLORIDE
     Indication: DEPRESSION
     Dosage: 60 MG
     Route: 048
     Dates: start: 20160413
  4. LOXOPROFEN SODIUM [Concomitant]
     Active Substance: LOXOPROFEN SODIUM
     Indication: HEADACHE
     Dosage: 180 MG
     Route: 048
     Dates: start: 20120709
  5. REFLEX [Suspect]
     Active Substance: MIRTAZAPINE
     Indication: DEPRESSION
     Dosage: 30 MG, QD
     Route: 048
     Dates: start: 20151106, end: 20171215
  6. RISPERIDONE. [Concomitant]
     Active Substance: RISPERIDONE
     Indication: IRRITABILITY
     Dosage: 1 MG
     Route: 048
     Dates: start: 20130627
  7. TRIAZOLAM. [Concomitant]
     Active Substance: TRIAZOLAM
     Indication: INSOMNIA
     Dosage: 0.5 MG
     Route: 048
     Dates: start: 20160701
  8. SUVOREXANT. [Concomitant]
     Active Substance: SUVOREXANT
     Indication: INSOMNIA
     Dosage: 20 MG
     Route: 048
     Dates: start: 20171215
  9. BENFOTIAMINE (+) CYANOCOBALAMIN (+) PYRIDOXINE HYDROCHLORIDE [Concomitant]
     Indication: HYPOVITAMINOSIS
     Dosage: 3 CAPSULES
     Route: 048
     Dates: start: 20130627
  10. FURSULTIAMINE [Concomitant]
     Active Substance: FURSULTIAMINE
     Indication: HYPOVITAMINOSIS
     Dosage: 75 MG
     Route: 048
     Dates: start: 20130627

REACTIONS (2)
  - Intentional overdose [Recovered/Resolved]
  - White blood cell count decreased [Recovered/Resolved]

NARRATIVE: CASE EVENT DATE: 20160131
